FAERS Safety Report 5066137-1 (Version None)
Quarter: 2006Q3

REPORT INFORMATION
  Report Type: 
  Country: None (occurrence: None)
  Receive Date: 20060725
  Receipt Date: 20060703
  Transmission Date: 20061208
  Serious: No
  Sender: FDA-Public Use
  Company Number: JP200604002597

PATIENT
  Age: 65 Year
  Sex: Female

DRUGS (1)
  1. EVISTA [Suspect]
     Indication: OSTEOPOROSIS
     Dosage: 60 MG, DAILY (1/D); ORAL
     Route: 048

REACTIONS (3)
  - CATARACT [None]
  - CONDITION AGGRAVATED [None]
  - VISUAL ACUITY REDUCED [None]
